FAERS Safety Report 16875620 (Version 2)
Quarter: 2022Q4

REPORT INFORMATION
  Report Type: Report from Study
  Country: US (occurrence: US)
  Receive Date: 20191002
  Receipt Date: 20221124
  Transmission Date: 20230113
  Serious: Yes (Hospitalization)
  Sender: FDA-Public Use
  Company Number: US-GW PHARMA-201907USGW2475

PATIENT
  Sex: Male

DRUGS (3)
  1. EPIDIOLEX [Suspect]
     Active Substance: CANNABIDIOL
     Indication: Lennox-Gastaut syndrome
     Dosage: 370 MILLIGRAM, BID
     Route: 048
     Dates: start: 20190328
  2. EPIDIOLEX [Suspect]
     Active Substance: CANNABIDIOL
     Dosage: 370 MILLIGRAM, BID
     Route: 048
  3. EPIDIOLEX [Suspect]
     Active Substance: CANNABIDIOL
     Dosage: 0.5 MILLILITER, BID
     Route: 048
     Dates: start: 20190328

REACTIONS (3)
  - Illness [Not Recovered/Not Resolved]
  - Illness [Unknown]
  - Product dose omission issue [Unknown]

NARRATIVE: CASE EVENT DATE: 20190101
